FAERS Safety Report 6737838-1 (Version None)
Quarter: 2010Q2

REPORT INFORMATION
  Report Type: 
  Country: None (occurrence: None)
  Receive Date: 20100524
  Receipt Date: 20100519
  Transmission Date: 20101027
  Serious: Yes (Life-Threatening)
  Sender: FDA-Public Use
  Company Number: ES-ASTRAZENECA-2010SE22915

PATIENT
  Age: 68 Year
  Sex: Male

DRUGS (3)
  1. OMEPRAZOLE [Suspect]
     Route: 048
     Dates: start: 20080101
  2. OMEPRAZOLE [Suspect]
     Route: 048
  3. LANSOPRAZOLE [Concomitant]
     Route: 048

REACTIONS (1)
  - KOUNIS SYNDROME [None]
